FAERS Safety Report 8148504-2 (Version None)
Quarter: 2012Q1

REPORT INFORMATION
  Report Type: 
  Country: None (occurrence: None)
  Receive Date: 20120218
  Receipt Date: 20110527
  Transmission Date: 20120608
  Serious: No
  Sender: FDA-Public Use
  Company Number: US-ALLERGAN-1107352US

PATIENT
  Age: 57 Year
  Sex: Female

DRUGS (3)
  1. BOTOX COSMETIC [Suspect]
     Indication: SKIN WRINKLING
     Dosage: UNK
     Route: 030
     Dates: start: 20110424, end: 20110424
  2. ADVAIR DISKUS 100/50 [Concomitant]
     Indication: RESPIRATORY DISORDER
     Dosage: UNK
     Route: 055
  3. SINGULAIR [Concomitant]
     Indication: RESPIRATORY DISORDER
     Dosage: 1 DF, QD
     Route: 048

REACTIONS (2)
  - DYSPHONIA [None]
  - COUGH [None]
